FAERS Safety Report 18311633 (Version 1)
Quarter: 2020Q3

REPORT INFORMATION
  Report Type: Spontaneous
  Country: US (occurrence: US)
  Receive Date: 20200925
  Receipt Date: 20200925
  Transmission Date: 20201103
  Serious: No
  Sender: FDA-Public Use
  Company Number: US-ELI_LILLY_AND_COMPANY-US202009011303

PATIENT
  Sex: Male

DRUGS (1)
  1. FORTEO [Suspect]
     Active Substance: TERIPARATIDE
     Indication: ANKLE FRACTURE
     Dosage: 20 UG, UNKNOWN
     Route: 058
     Dates: start: 20200903

REACTIONS (2)
  - Blood parathyroid hormone decreased [Unknown]
  - Off label use [Unknown]

NARRATIVE: CASE EVENT DATE: 202009
